FAERS Safety Report 6964433-1 (Version None)
Quarter: 2010Q3

REPORT INFORMATION
  Report Type: 
  Country: None (occurrence: None)
  Receive Date: 20100903
  Receipt Date: 20100824
  Transmission Date: 20110219
  Serious: Yes (Hospitalization)
  Sender: FDA-Public Use
  Company Number: FR-PFIZER INC-2008051268

PATIENT
  Age: 37 Year
  Sex: Female
  Weight: 52 kg

DRUGS (2)
  1. SUNITINIB MALATE [Suspect]
     Indication: BREAST CANCER
     Dosage: 37.5 MG, 1X/DAY
     Route: 048
     Dates: start: 20071121, end: 20080603
  2. TRASTUZUMAB [Suspect]
     Indication: BREAST CANCER
     Dosage: 315 MG, EVERY 3 WEEKS
     Route: 042
     Dates: start: 20071113, end: 20080905

REACTIONS (1)
  - ANAL FISTULA [None]
